FAERS Safety Report 7867923-2 (Version None)
Quarter: 2011Q4

REPORT INFORMATION
  Report Type: 
  Country: None (occurrence: None)
  Receive Date: 20111028
  Receipt Date: 19970312
  Transmission Date: 20120403
  Serious: Yes (Death)
  Sender: FDA-Public Use
  Company Number: US-ASTRAZENECA-1997UW40178

PATIENT
  Age: 79 Year
  Sex: Female

DRUGS (14)
  1. DROPERIDOL [Concomitant]
     Indication: INDUCTION OF ANAESTHESIA
  2. ISOFLURANE [Concomitant]
     Indication: UNEVALUABLE EVENT
  3. VECURONIUM BROMIDE [Concomitant]
     Indication: UNEVALUABLE EVENT
  4. NITROUS OXIDE [Concomitant]
     Indication: UNEVALUABLE EVENT
  5. DIPRIVAN [Suspect]
     Indication: INDUCTION OF ANAESTHESIA
     Route: 042
  6. NITROGLYCERIN [Concomitant]
  7. DISOPYRAMIDE [Concomitant]
  8. INDOMETHACIN [Concomitant]
  9. MORPHINE [Concomitant]
     Indication: UNEVALUABLE EVENT
     Route: 030
  10. OXYGEN [Concomitant]
     Indication: UNEVALUABLE EVENT
  11. FENTANYL-100 [Concomitant]
     Indication: INDUCTION OF ANAESTHESIA
  12. ISOSORBIDE DINITRATE [Concomitant]
  13. MIDAZOLAM HCL [Concomitant]
     Indication: UNEVALUABLE EVENT
  14. SUCCINYLCHOLINE CHLORIDE [Concomitant]
     Indication: INDUCTION OF ANAESTHESIA

REACTIONS (5)
  - PULMONARY EMBOLISM [None]
  - HYPOTENSION [None]
  - BRADYCARDIA [None]
  - CARDIAC ARREST [None]
  - DEATH [None]
